FAERS Safety Report 11390593 (Version 2)
Quarter: 2015Q4

REPORT INFORMATION
  Report Type: Spontaneous
  Country: RO (occurrence: RO)
  Receive Date: 20150818
  Receipt Date: 20151229
  Transmission Date: 20160304
  Serious: Yes (Death, Hospitalization)
  Sender: FDA-Public Use
  Company Number: RO-AUROBINDO-AUR-APL-2015-07272

PATIENT
  Age: 71 Year
  Sex: Female

DRUGS (1)
  1. LAMIVUDINE. [Suspect]
     Active Substance: LAMIVUDINE
     Indication: HEPATITIS B
     Route: 065

REACTIONS (12)
  - Multi-organ failure [Fatal]
  - Cachexia [Unknown]
  - Decreased appetite [Unknown]
  - Thrombocytopenia [Unknown]
  - Sepsis [Fatal]
  - Pyrexia [Unknown]
  - Dyspnoea [Unknown]
  - Lymphocytic leukaemia [Fatal]
  - Cough [Unknown]
  - Weight decreased [Unknown]
  - Anaemia [Unknown]
  - Malaise [Unknown]
